FAERS Safety Report 8021282-3 (Version None)
Quarter: 2012Q1

REPORT INFORMATION
  Report Type: 
  Country: None (occurrence: None)
  Receive Date: 20120104
  Receipt Date: 20111222
  Transmission Date: 20120608
  Serious: Yes (Hospitalization)
  Sender: FDA-Public Use
  Company Number: US-BAYER-2011-055470

PATIENT
  Age: 38 Year
  Sex: Female
  Weight: 61 kg

DRUGS (9)
  1. SYNTHROID [Concomitant]
     Dosage: 125 MCG/24HR, UNK
  2. HYDROCODONE [Concomitant]
  3. MULTI-VITAMINS [Concomitant]
     Dosage: UNK
     Dates: start: 20080101, end: 20100624
  4. CYCLOBENZAPRINE [Concomitant]
     Dosage: 10 MG, UNK
  5. YASMIN [Suspect]
     Indication: CONTRACEPTION
     Dosage: UNK
     Route: 048
     Dates: start: 20090201, end: 20100601
  6. SERTRALINE HYDROCHLORIDE [Concomitant]
     Dosage: 100 MG, UNK
  7. ZOLPIDEM TARTRATE [Concomitant]
     Dosage: 10 MG, UNK
     Route: 048
  8. DROSPIRENONE AND ETHINYL ESTRADIOL [Suspect]
     Indication: CONTRACEPTION
     Dosage: UNK
     Dates: start: 20090201, end: 20100601
  9. TRAMADOLI HYDROCHLORIDUM [Concomitant]
     Dosage: 50 MG, UNK

REACTIONS (4)
  - MENTAL DISORDER [None]
  - DEEP VEIN THROMBOSIS [None]
  - PAIN [None]
  - FEAR [None]
